FAERS Safety Report 17718727 (Version 2)
Quarter: 2020Q2

REPORT INFORMATION
  Report Type: Spontaneous
  Country: NL (occurrence: NL)
  Receive Date: 20200428
  Receipt Date: 20200505
  Transmission Date: 20200714
  Serious: Yes (Other)
  Sender: FDA-Public Use
  Company Number: NL-SA-2020SA106524

PATIENT
  Age: 73 Year
  Sex: Male
  Weight: 75 kg

DRUGS (2)
  1. MACROGOL [Concomitant]
     Active Substance: POLYETHYLENE GLYCOLS
     Dosage: MACROGOL 13,7
     Route: 065
  2. TAMSULOSIN HYDROCHLORIDE. [Suspect]
     Active Substance: TAMSULOSIN HYDROCHLORIDE
     Indication: MICTURITION DISORDER
     Dosage: UNK MG, QD
     Route: 065
     Dates: start: 20200327, end: 20200329

REACTIONS (6)
  - Dyskinesia [Recovered/Resolved]
  - Seizure [Recovered/Resolved]
  - Pain in jaw [Recovering/Resolving]
  - Tongue spasm [Recovered/Resolved]
  - Facial pain [Recovering/Resolving]
  - Dizziness [Unknown]

NARRATIVE: CASE EVENT DATE: 20200329
